FAERS Safety Report 19129168 (Version 1)
Quarter: 2021Q2

REPORT INFORMATION
  Report Type: Spontaneous
  Country: US (occurrence: US)
  Receive Date: 20210413
  Receipt Date: 20210413
  Transmission Date: 20210717
  Serious: No
  Sender: FDA-Public Use
  Company Number: US-SA-2021SA120671

PATIENT
  Sex: Female

DRUGS (2)
  1. LUMIZYME [Suspect]
     Active Substance: ALGLUCOSIDASE ALFA
     Indication: GLYCOGEN STORAGE DISEASE TYPE II
     Dosage: UNK
     Route: 065
  2. LUMIZYME [Suspect]
     Active Substance: ALGLUCOSIDASE ALFA
     Dosage: 40 MG/KG, QOW
     Route: 065
     Dates: start: 202001

REACTIONS (2)
  - Motor developmental delay [Unknown]
  - Blood creatine phosphokinase abnormal [Unknown]
